FAERS Safety Report 5705279-1 (Version None)
Quarter: 2008Q2

REPORT INFORMATION
  Report Type: 
  Country: None (occurrence: None)
  Receive Date: 20080411
  Receipt Date: 20080404
  Transmission Date: 20081010
  Serious: Yes (Other)
  Sender: FDA-Public Use
  Company Number: 2008008465

PATIENT
  Age: 60 Year
  Sex: Male
  Weight: 97.5 kg

DRUGS (1)
  1. ROGAINE 5 [Suspect]
     Indication: ALOPECIA
     Dosage: 3/4 OF A CAN IN TWO USED 2 TIMES PER DAY (2 IN 1 D), TOPICAL
     Route: 061
     Dates: start: 20080304, end: 20080318

REACTIONS (4)
  - APPLICATION SITE ERYTHEMA [None]
  - APPLICATION SITE IRRITATION [None]
  - APPLICATION SITE SWELLING [None]
  - INCORRECT DOSE ADMINISTERED [None]
